FAERS Safety Report 25242627 (Version 3)
Quarter: 2025Q2

REPORT INFORMATION
  Report Type: Spontaneous
  Country: KR (occurrence: KR)
  Receive Date: 20250427
  Receipt Date: 20250605
  Transmission Date: 20250716
  Serious: No
  Sender: ABBVIE
  Company Number: KR-ABBVIE-6240554

PATIENT

DRUGS (1)
  1. OZURDEX [Suspect]
     Active Substance: DEXAMETHASONE
     Indication: Product used for unknown indication
     Route: 050

REACTIONS (1)
  - No adverse event [Unknown]
